FAERS Safety Report 10064461 (Version 1)
Quarter: 2014Q2

REPORT INFORMATION
  Report Type: Spontaneous
  Country: GB (occurrence: None)
  Receive Date: 20140404
  Receipt Date: 20140404
  Transmission Date: 20141212
  Serious: Yes (Other)
  Sender: FDA-Public Use
  Company Number: AUR-APL-2014-04098

PATIENT
  Age: 40 Year
  Sex: Female
  Weight: 70 kg

DRUGS (4)
  1. CIPROFLOXACIN [Suspect]
     Indication: URINARY TRACT INFECTION
     Dates: start: 20140203, end: 20140205
  2. FERROUS FUMARATE (FERROUS FUMARATE) [Concomitant]
  3. LACTOBACILLUS ACIDOPHILUS (LACTOBACILLUS ACIDOPHILUS) [Concomitant]
  4. VITAMIN D3 (COLECALCIFEROL) [Concomitant]

REACTIONS (6)
  - Urticaria [None]
  - Pruritus [None]
  - Rash [None]
  - Dyspnoea [None]
  - Chest pain [None]
  - Rash pruritic [None]
